FAERS Safety Report 11429606 (Version 1)
Quarter: 2015Q3

REPORT INFORMATION
  Report Type: Spontaneous
  Country: US (occurrence: US)
  Receive Date: 20150828
  Receipt Date: 20150828
  Transmission Date: 20151125
  Serious: Yes (Other)
  Sender: FDA-Public Use
  Company Number: US-ROCHE-1097402

PATIENT
  Age: 58 Year
  Sex: Female

DRUGS (3)
  1. PEGASYS [Suspect]
     Active Substance: PEGINTERFERON ALFA-2A
     Indication: HEPATITIS C
     Route: 058
     Dates: start: 20120720
  2. RIBAVIRIN. [Suspect]
     Active Substance: RIBAVIRIN
     Indication: HEPATITIS C
     Route: 048
     Dates: start: 20120720
  3. TELAPREVIR [Suspect]
     Active Substance: TELAPREVIR
     Indication: HEPATITIS C
     Route: 065
     Dates: start: 20120720

REACTIONS (12)
  - Asthma [Unknown]
  - Rash generalised [Unknown]
  - Aphthous ulcer [Unknown]
  - Full blood count decreased [Unknown]
  - Decreased appetite [Unknown]
  - Depression [Unknown]
  - Chills [Unknown]
  - Malaise [Unknown]
  - Thirst [Unknown]
  - Oral candidiasis [Unknown]
  - Chills [Unknown]
  - Alopecia [Unknown]

NARRATIVE: CASE EVENT DATE: 20120720
